FAERS Safety Report 20707287 (Version 1)
Quarter: 2022Q2

REPORT INFORMATION
  Report Type: Spontaneous
  Country: TW (occurrence: TW)
  Receive Date: 20220413
  Receipt Date: 20220413
  Transmission Date: 20220721
  Serious: Yes (Other)
  Sender: FDA-Public Use
  Company Number: TW-LUPIN PHARMACEUTICALS INC.-2022-05572

PATIENT
  Age: 63 Year
  Sex: Female

DRUGS (4)
  1. AGOMELATINE [Interacting]
     Active Substance: AGOMELATINE
     Indication: Generalised anxiety disorder
     Dosage: 2 DOSAGE FORM, QD (AGOMELATINE 2 TABLETS OF 25MG AT BEDTIME)
     Route: 065
  2. AGOMELATINE [Interacting]
     Active Substance: AGOMELATINE
     Indication: Delusional disorder, unspecified type
     Dosage: UNK(TAPERED OFF)
     Route: 065
  3. LURASIDONE HYDROCHLORIDE [Interacting]
     Active Substance: LURASIDONE HYDROCHLORIDE
     Indication: Generalised anxiety disorder
     Dosage: 1 DOSAGE FORM, QD (RECEIVED 1 TABLET OF 40MG AT BEDTIME)
     Route: 065
  4. LURASIDONE HYDROCHLORIDE [Interacting]
     Active Substance: LURASIDONE HYDROCHLORIDE
     Indication: Delusional disorder, unspecified type

REACTIONS (3)
  - Drug-induced liver injury [Recovered/Resolved]
  - Hepatotoxicity [Recovered/Resolved]
  - Drug interaction [Unknown]
